FAERS Safety Report 9493247 (Version 1)
Quarter: 2013Q3

REPORT INFORMATION
  Report Type: Spontaneous
  Country: AR (occurrence: AR)
  Receive Date: 20130902
  Receipt Date: 20130902
  Transmission Date: 20140515
  Serious: Yes (Death)
  Sender: FDA-Public Use
  Company Number: PHHY2013AR094868

PATIENT
  Sex: Male

DRUGS (1)
  1. EXELON PATCH [Suspect]
     Indication: SENILE DEMENTIA
     Dosage: 1 DF, QD
     Route: 062
     Dates: start: 2008

REACTIONS (3)
  - Senile dementia [Fatal]
  - Parkinson^s disease [Fatal]
  - Depressed mood [Unknown]
